FAERS Safety Report 8943953 (Version 2)
Quarter: 2012Q4

REPORT INFORMATION
  Report Type: 
  Country: JP (occurrence: JP)
  Receive Date: 20121204
  Receipt Date: 20121214
  Transmission Date: 20130627
  Serious: Yes (Other)
  Sender: FDA-Public Use
  Company Number: JP-PFIZER INC-2012298333

PATIENT
  Age: 65 Year
  Sex: Male

DRUGS (1)
  1. TORISEL [Suspect]
     Indication: RENAL CELL CARCINOMA
     Dosage: 25 mg, weekly
     Route: 042
     Dates: start: 20120502, end: 20120509

REACTIONS (2)
  - Haemorrhage [Recovering/Resolving]
  - Platelet count decreased [Recovering/Resolving]
